FAERS Safety Report 6491370-1 (Version None)
Quarter: 2009Q4

REPORT INFORMATION
  Report Type: 
  Country: None (occurrence: None)
  Receive Date: 20091211
  Receipt Date: 20091120
  Transmission Date: 20100525
  Serious: Yes (Other)
  Sender: FDA-Public Use
  Company Number: PHHY2009JP51586

PATIENT
  Age: 36 Year

DRUGS (2)
  1. TEGRETOL [Suspect]
     Indication: TRIGEMINAL NEURALGIA
     Dosage: 100 MG DAILY
     Route: 048
  2. TEGRETOL [Suspect]
     Dosage: 200 MG DAILY
     Route: 048

REACTIONS (1)
  - HYPOACUSIS [None]
